FAERS Safety Report 15015216 (Version 1)
Quarter: 2018Q2

REPORT INFORMATION
  Report Type: Spontaneous
  Country: GB (occurrence: GB)
  Receive Date: 20180615
  Receipt Date: 20180615
  Transmission Date: 20180711
  Serious: Yes (Other)
  Sender: FDA-Public Use
  Company Number: GB-TEVA-2018-GB-907879

PATIENT
  Age: 75 Year
  Sex: Male

DRUGS (10)
  1. DILTIAZEM. [Suspect]
     Active Substance: DILTIAZEM
     Route: 065
     Dates: start: 20171026
  2. MAGNESIUM [Concomitant]
     Active Substance: MAGNESIUM
     Route: 065
  3. VOLTAROL [Concomitant]
     Active Substance: DICLOFENAC SODIUM
     Route: 065
  4. RANITIDINE. [Concomitant]
     Active Substance: RANITIDINE
     Route: 065
  5. CALCIUM AND VITAMIN D3 [Concomitant]
     Active Substance: CALCIUM\CHOLECALCIFEROL
     Route: 065
  6. PEPPERMINT OIL [Concomitant]
     Active Substance: PEPPERMINT OIL
     Route: 065
  7. BENZYDAMINE [Concomitant]
     Active Substance: BENZYDAMINE
     Route: 065
  8. PARACETAMOL [Concomitant]
     Active Substance: ACETAMINOPHEN
     Route: 065
  9. CETRABEN EMOLLIENT CREAM [Concomitant]
     Route: 065
  10. ATORVASTATIN [Concomitant]
     Active Substance: ATORVASTATIN
     Route: 065

REACTIONS (2)
  - Peripheral swelling [Recovering/Resolving]
  - Somnolence [Recovering/Resolving]
